FAERS Safety Report 5397121-6 (Version None)
Quarter: 2007Q3

REPORT INFORMATION
  Report Type: 
  Country: None (occurrence: None)
  Receive Date: 20070723
  Receipt Date: 20070710
  Transmission Date: 20080115
  Serious: Yes (Hospitalization)
  Sender: FDA-Public Use
  Company Number: 2007BI012092

PATIENT
  Age: 59 Year
  Sex: Female

DRUGS (14)
  1. NATALIZUMAB [Suspect]
     Indication: MULTIPLE SCLEROSIS
     Dosage: 300 MG; QM; IV
     Route: 042
     Dates: start: 20061101
  2. MIRAPEX [Concomitant]
  3. TOPAMAX [Concomitant]
  4. IMITREX [Concomitant]
  5. FIORICET [Concomitant]
  6. SYNTHROID [Concomitant]
  7. BACLOFEN [Concomitant]
  8. MULTI-VITAMIN [Concomitant]
  9. LEXAPRO [Concomitant]
  10. PROVIGIL [Concomitant]
  11. KLONOPIN [Concomitant]
  12. PROTONIX [Concomitant]
  13. FOSAMAX [Concomitant]
  14. SLOW-FE [Concomitant]

REACTIONS (1)
  - DEEP VEIN THROMBOSIS [None]
